FAERS Safety Report 13442278 (Version 1)
Quarter: 2017Q2

REPORT INFORMATION
  Report Type: Spontaneous
  Country: DE (occurrence: DE)
  Receive Date: 20170414
  Receipt Date: 20170414
  Transmission Date: 20170830
  Serious: Yes (Other)
  Sender: FDA-Public Use
  Company Number: DE-ACCORD-050111

PATIENT
  Age: 1 Day
  Sex: Male
  Weight: 3.22 kg

DRUGS (3)
  1. FOLSAEURE ABZ [Concomitant]
     Indication: PROPHYLAXIS OF NEURAL TUBE DEFECT
     Dosage: 5 MG/D
     Route: 064
  2. VENLAFAXINE/VENLAFAXINE HYDROCHLORIDE [Suspect]
     Active Substance: VENLAFAXINE HYDROCHLORIDE
     Indication: DEPRESSION
     Dosage: INITIAL 225 MG/D, DOSAGE REDUCTION TO 75MG/D
     Route: 064
     Dates: start: 20151112, end: 20160816
  3. QUETIAPINE. [Suspect]
     Active Substance: QUETIAPINE
     Indication: DEPRESSION
     Dosage: INITIAL 100MG/D, DOSAGE REDUCTION TO 25MG/D
     Route: 064
     Dates: start: 20151112, end: 20160816

REACTIONS (5)
  - Drug withdrawal syndrome neonatal [Recovered/Resolved]
  - Maternal drugs affecting foetus [None]
  - Bradycardia neonatal [Recovered/Resolved]
  - Hypertonia neonatal [Recovering/Resolving]
  - Foetal exposure during pregnancy [Unknown]

NARRATIVE: CASE EVENT DATE: 20160816
